FAERS Safety Report 9577068 (Version 1)
Quarter: 2013Q4

REPORT INFORMATION
  Report Type: Spontaneous
  Country: US (occurrence: US)
  Receive Date: 20131001
  Receipt Date: 20131001
  Transmission Date: 20140711
  Serious: No
  Sender: FDA-Public Use
  Company Number: US-AMGEN-USASP2013006384

PATIENT
  Sex: Female
  Weight: 66.67 kg

DRUGS (15)
  1. VITAMIN B [Concomitant]
     Dosage: UNK
  2. FOLIC ACID [Concomitant]
     Dosage: UNK
  3. FOLOTYN [Concomitant]
     Dosage: 20 MG, UNK
  4. ENBREL [Suspect]
     Indication: RHEUMATOID ARTHRITIS
     Dosage: 25 MG, 2 TIMES/WK
  5. PLAQUENIL                          /00072602/ [Concomitant]
     Dosage: 200 MG, UNK
  6. METHOTREXATE [Concomitant]
     Dosage: 2.5 MG, UNK
  7. NAPROXEN [Concomitant]
     Dosage: 250 MG, UNK
  8. VITAMIN E                          /00110501/ [Concomitant]
     Dosage: 1000 UNIT, UNK
  9. LEVOTHYROXIN [Concomitant]
     Dosage: 50MCG
  10. PHENTERMINE [Concomitant]
     Dosage: 15 MG, UNK
  11. PRILOSEC                           /00661201/ [Concomitant]
     Dosage: 10 MG, UNK
  12. VITAMIN A                          /00056001/ [Concomitant]
     Dosage: 10000 UNIT, UNK
  13. VITAMIN D                          /00107901/ [Concomitant]
     Dosage: 1000 UNIT, UNK
  14. GAVISCON                           /00902401/ [Concomitant]
     Dosage: 500 MG, UNK
  15. MYLANTA                            /00036701/ [Concomitant]
     Dosage: 400 MG, UNK

REACTIONS (1)
  - Sinusitis [Unknown]
